FAERS Safety Report 8268231 (Version 5)
Quarter: 2013Q2

REPORT INFORMATION
  Report Type: Spontaneous
  Country: US (occurrence: None)
  Receive Date: 20111122
  Receipt Date: 20120426
  Transmission Date: 20140414
  Serious: Yes (Other)
  Sender: FDA-Public Use
  Company Number: PHHY2011US52100

PATIENT
  Age: 46 Year
  Sex: Female

DRUGS (9)
  1. GILENYA [Suspect]
     Indication: MULTIPLE SCLEROSIS
     Dosage: 0.5 MG, QD, ORAL
     Route: 048
     Dates: start: 20110608
  2. AVONEX (INTERFERON BETA-1A) [Suspect]
     Indication: MULTIPLE SCLEROSIS
  3. BETASERON ? [Suspect]
     Indication: MULTIPLE SCLEROSIS
  4. REBIF (INTERFERON BETA-1A) [Suspect]
     Indication: MULTIPLE SCLEROSIS
  5. TYLENOL (PARACETAMOL) [Suspect]
  6. ALEVE [Suspect]
  7. NOVANTRONE [Suspect]
  8. DITROPAN XL (OXYBUTYNIN HYDROCHLORIDE) [Concomitant]
  9. AMBIEN (ZOLPIDEM TARTRATE) [Concomitant]

REACTIONS (11)
  - POLLAKIURIA [None]
  - Heart rate decreased [None]
  - Lethargy [None]
  - Insomnia [None]
  - Gastrointestinal disorder [None]
  - Palpitations [None]
  - Fatigue [None]
  - Dyspnoea [None]
  - Influenza like illness [None]
  - Dizziness [None]
  - Bowel movement irregularity [None]
